FAERS Safety Report 14738100 (Version 1)
Quarter: 2018Q2

REPORT INFORMATION
  Report Type: Spontaneous
  Country: FR (occurrence: FR)
  Receive Date: 20180409
  Receipt Date: 20180409
  Transmission Date: 20180711
  Serious: Yes (Death, Hospitalization)
  Sender: FDA-Public Use
  Company Number: FR-009507513-1804FRA001804

PATIENT
  Age: 63 Year
  Sex: Male
  Weight: 63 kg

DRUGS (6)
  1. EMEND [Suspect]
     Active Substance: APREPITANT
     Indication: NAUSEA
     Route: 048
     Dates: start: 20180220, end: 20180222
  2. ZOLEDRONIC ACID [Suspect]
     Active Substance: ZOLEDRONIC ACID
     Indication: HYPERCALCAEMIA
     Dosage: IN TOTAL
     Route: 042
     Dates: start: 20180220, end: 20180220
  3. SOLUPRED (PREDNISOLONE SODIUM METAZOATE) [Suspect]
     Active Substance: PREDNISOLONE SODIUM METAZOATE
     Indication: NAUSEA
     Route: 048
     Dates: start: 20180220, end: 20180222
  4. ONDANSETRON [Suspect]
     Active Substance: ONDANSETRON
     Indication: NAUSEA
     Route: 048
     Dates: start: 20180220, end: 20180220
  5. CISPLATIN ACCORD [Suspect]
     Active Substance: CISPLATIN
     Indication: LUNG NEOPLASM MALIGNANT
     Dosage: IN TOTAL
     Route: 042
     Dates: start: 20180220, end: 20180220
  6. DOCETAXEL. [Suspect]
     Active Substance: DOCETAXEL
     Indication: LUNG NEOPLASM MALIGNANT
     Dosage: IN TOTAL
     Route: 042
     Dates: start: 20180220, end: 20180220

REACTIONS (2)
  - Diarrhoea [Fatal]
  - Septic shock [Recovering/Resolving]

NARRATIVE: CASE EVENT DATE: 20180228
